FAERS Safety Report 20157904 (Version 5)
Quarter: 2022Q4

REPORT INFORMATION
  Report Type: Report from Study
  Country: KR (occurrence: KR)
  Receive Date: 20211207
  Receipt Date: 20221110
  Transmission Date: 20230112
  Serious: Yes (Death, Hospitalization)
  Sender: FDA-Public Use
  Company Number: KR-KARYOPHARM-2021KPT001534

PATIENT
  Age: 59 Year
  Sex: Female
  Weight: 59 kg

DRUGS (7)
  1. SELINEXOR [Suspect]
     Active Substance: SELINEXOR
     Indication: Plasma cell myeloma
     Dosage: 80 MG, 2X/WEEK
     Route: 048
     Dates: start: 20210928, end: 20210928
  2. DEXAMETHASONE [Concomitant]
     Active Substance: DEXAMETHASONE
     Indication: Plasma cell myeloma
  3. SULFAMETHOXAZOLE\TRIMETHOPRIM [Concomitant]
     Active Substance: SULFAMETHOXAZOLE\TRIMETHOPRIM
     Indication: Antibiotic prophylaxis
     Dosage: 80 /400 MG, QD
     Dates: start: 20210907
  4. LIPITOR [Concomitant]
     Active Substance: ATORVASTATIN CALCIUM
     Dosage: 10 MG, QD
     Dates: start: 20210907
  5. DICAMAX [Concomitant]
     Dosage: 250 MG
  6. NAXEN-F [Concomitant]
     Indication: Pain
     Dosage: 500 MG, QD
     Dates: start: 20210907
  7. VACRAX [ACICLOVIR] [Concomitant]
     Dosage: 200 MG

REACTIONS (5)
  - Pancytopenia [Fatal]
  - Sepsis [Fatal]
  - Extradural haematoma [Fatal]
  - Pyrexia [Unknown]
  - Anaemia [Unknown]

NARRATIVE: CASE EVENT DATE: 20210101
